FAERS Safety Report 6356022-7 (Version None)
Quarter: 2009Q3

REPORT INFORMATION
  Report Type: 
  Country: None (occurrence: None)
  Receive Date: 20090915
  Receipt Date: 20090904
  Transmission Date: 20100115
  Serious: Yes (Other)
  Sender: FDA-Public Use
  Company Number: AR-AMGEN-US364044

PATIENT
  Sex: Female
  Weight: 65 kg

DRUGS (6)
  1. ENBREL [Suspect]
     Indication: RHEUMATOID ARTHRITIS
     Route: 058
     Dates: start: 20050304, end: 20090810
  2. DILATREND [Concomitant]
     Route: 065
  3. IBANDRONATE SODIUM [Concomitant]
     Indication: PROPHYLAXIS
     Route: 065
  4. LOTRIAL [Concomitant]
     Indication: HYPERTENSION
     Route: 065
  5. METHOTREXATE [Concomitant]
     Indication: RHEUMATOID ARTHRITIS
     Route: 065
  6. CALCIUM [Concomitant]
     Indication: PROPHYLAXIS
     Dosage: ONE TABLET
     Route: 048

REACTIONS (2)
  - UTERINE CANCER [None]
  - UTERINE HAEMORRHAGE [None]
